FAERS Safety Report 21676080 (Version 1)
Quarter: 2022Q4

REPORT INFORMATION
  Report Type: Spontaneous
  Country: US (occurrence: US)
  Receive Date: 20221202
  Receipt Date: 20221202
  Transmission Date: 20230113
  Serious: No
  Sender: FDA-Public Use
  Company Number: US-BRISTOL-MYERS SQUIBB COMPANY-2022-147014

PATIENT
  Age: 83 Year
  Sex: Female

DRUGS (1)
  1. REVLIMID [Suspect]
     Active Substance: LENALIDOMIDE
     Indication: Plasma cell myeloma
     Dosage: DAILY FOR 7 DAYS THEN OFF 7 DAYS THEN REPEAT
     Route: 048
     Dates: start: 20210126

REACTIONS (3)
  - Product dose omission issue [Unknown]
  - Product selection error [Unknown]
  - Off label use [Unknown]
